FAERS Safety Report 18506770 (Version 3)
Quarter: 2025Q4

REPORT INFORMATION
  Report Type: Spontaneous
  Country: CA (occurrence: CA)
  Receive Date: 20201116
  Receipt Date: 20251125
  Transmission Date: 20260117
  Serious: Yes (Other)
  Sender: MYLAN
  Company Number: CA-PFIZER INC-2017146654

PATIENT
  Sex: Male

DRUGS (60)
  1. NORVASC [Suspect]
     Active Substance: AMLODIPINE BESYLATE
     Indication: Product used for unknown indication
     Dosage: 5 MILLIGRAM, QD (1 EVERY 1 DAYS)
  2. NORVASC [Suspect]
     Active Substance: AMLODIPINE BESYLATE
     Dosage: 5 MILLIGRAM, QD (1 EVERY 1 DAYS)
     Route: 065
  3. NORVASC [Suspect]
     Active Substance: AMLODIPINE BESYLATE
     Dosage: 5 MILLIGRAM, QD (1 EVERY 1 DAYS)
     Route: 065
  4. NORVASC [Suspect]
     Active Substance: AMLODIPINE BESYLATE
     Dosage: 5 MILLIGRAM, QD (1 EVERY 1 DAYS)
  5. AMLODIPINE BESYLATE [Suspect]
     Active Substance: AMLODIPINE BESYLATE
     Indication: Product used for unknown indication
     Dosage: 5 MILLIGRAM, QD (1 EVERY 1 DAYS)
  6. AMLODIPINE BESYLATE [Suspect]
     Active Substance: AMLODIPINE BESYLATE
     Dosage: 5 MILLIGRAM, QD (1 EVERY 1 DAYS)
     Route: 065
  7. AMLODIPINE BESYLATE [Suspect]
     Active Substance: AMLODIPINE BESYLATE
     Dosage: 5 MILLIGRAM, QD (1 EVERY 1 DAYS)
     Route: 065
  8. AMLODIPINE BESYLATE [Suspect]
     Active Substance: AMLODIPINE BESYLATE
     Dosage: 5 MILLIGRAM, QD (1 EVERY 1 DAYS)
  9. SOMAVERT [Suspect]
     Active Substance: PEGVISOMANT
     Indication: Acromegaly
     Dosage: 20 MILLIGRAM, QD (1 EVERY 1 DAYS)
     Dates: start: 20170330, end: 20181108
  10. SOMAVERT [Suspect]
     Active Substance: PEGVISOMANT
     Dosage: 20 MILLIGRAM, QD (1 EVERY 1 DAYS)
     Dates: start: 20170330, end: 20181108
  11. SOMAVERT [Suspect]
     Active Substance: PEGVISOMANT
     Dosage: 20 MILLIGRAM, QD (1 EVERY 1 DAYS)
     Route: 058
     Dates: start: 20170330, end: 20181108
  12. SOMAVERT [Suspect]
     Active Substance: PEGVISOMANT
     Dosage: 20 MILLIGRAM, QD (1 EVERY 1 DAYS)
     Route: 058
     Dates: start: 20170330, end: 20181108
  13. SOMAVERT [Suspect]
     Active Substance: PEGVISOMANT
     Dosage: 20 MILLIGRAM, QD (1 EVERY 1 DAYS)
     Route: 058
     Dates: start: 2018, end: 2019
  14. SOMAVERT [Suspect]
     Active Substance: PEGVISOMANT
     Dosage: 20 MILLIGRAM, QD (1 EVERY 1 DAYS)
     Route: 058
     Dates: start: 2018, end: 2019
  15. SOMAVERT [Suspect]
     Active Substance: PEGVISOMANT
     Dosage: 20 MILLIGRAM, QD (1 EVERY 1 DAYS)
     Dates: start: 2018, end: 2019
  16. SOMAVERT [Suspect]
     Active Substance: PEGVISOMANT
     Dosage: 20 MILLIGRAM, QD (1 EVERY 1 DAYS)
     Dates: start: 2018, end: 2019
  17. SOMAVERT [Suspect]
     Active Substance: PEGVISOMANT
     Dosage: 25 MILLIGRAM, QD (1 EVERY 1 DAYS)
     Route: 058
     Dates: start: 2019
  18. SOMAVERT [Suspect]
     Active Substance: PEGVISOMANT
     Dosage: 25 MILLIGRAM, QD (1 EVERY 1 DAYS)
     Route: 058
     Dates: start: 2019
  19. SOMAVERT [Suspect]
     Active Substance: PEGVISOMANT
     Dosage: 25 MILLIGRAM, QD (1 EVERY 1 DAYS)
     Dates: start: 2019
  20. SOMAVERT [Suspect]
     Active Substance: PEGVISOMANT
     Dosage: 25 MILLIGRAM, QD (1 EVERY 1 DAYS)
     Dates: start: 2019
  21. SOMAVERT [Suspect]
     Active Substance: PEGVISOMANT
     Dosage: 30 MILLIGRAM, QD (1 EVERY 1 DAYS)
     Dates: start: 2018, end: 2019
  22. SOMAVERT [Suspect]
     Active Substance: PEGVISOMANT
     Dosage: 30 MILLIGRAM, QD (1 EVERY 1 DAYS)
     Dates: start: 2018, end: 2019
  23. SOMAVERT [Suspect]
     Active Substance: PEGVISOMANT
     Dosage: 30 MILLIGRAM, QD (1 EVERY 1 DAYS)
     Route: 058
     Dates: start: 2018, end: 2019
  24. SOMAVERT [Suspect]
     Active Substance: PEGVISOMANT
     Dosage: 30 MILLIGRAM, QD (1 EVERY 1 DAYS)
     Route: 058
     Dates: start: 2018, end: 2019
  25. SOMAVERT [Suspect]
     Active Substance: PEGVISOMANT
     Indication: Acromegaly
     Dosage: 20 MILLIGRAM, QD (1 EVERY 1 DAYS)
  26. SOMAVERT [Suspect]
     Active Substance: PEGVISOMANT
     Dosage: 20 MILLIGRAM, QD (1 EVERY 1 DAYS)
     Route: 058
  27. SOMAVERT [Suspect]
     Active Substance: PEGVISOMANT
     Dosage: 20 MILLIGRAM, QD (1 EVERY 1 DAYS)
     Route: 058
  28. SOMAVERT [Suspect]
     Active Substance: PEGVISOMANT
     Dosage: 20 MILLIGRAM, QD (1 EVERY 1 DAYS)
  29. SYNTHROID [Concomitant]
     Active Substance: LEVOTHYROXINE SODIUM
     Indication: Product used for unknown indication
     Dosage: 112 MICROGRAM, QD (1 EVERY 1 DAYS)
     Dates: start: 201808
  30. SYNTHROID [Concomitant]
     Active Substance: LEVOTHYROXINE SODIUM
     Dosage: 112 MICROGRAM, QD (1 EVERY 1 DAYS)
     Route: 065
     Dates: start: 201808
  31. SYNTHROID [Concomitant]
     Active Substance: LEVOTHYROXINE SODIUM
     Dosage: 112 MICROGRAM, QD (1 EVERY 1 DAYS)
     Route: 065
     Dates: start: 201808
  32. SYNTHROID [Concomitant]
     Active Substance: LEVOTHYROXINE SODIUM
     Dosage: 112 MICROGRAM, QD (1 EVERY 1 DAYS)
     Dates: start: 201808
  33. SANDOSTATIN [Concomitant]
     Active Substance: OCTREOTIDE ACETATE
     Indication: Product used for unknown indication
     Dosage: 20 MILLIGRAM, MONTHLY
     Dates: start: 201601
  34. SANDOSTATIN [Concomitant]
     Active Substance: OCTREOTIDE ACETATE
     Dosage: 20 MILLIGRAM, MONTHLY
     Route: 065
     Dates: start: 201601
  35. SANDOSTATIN [Concomitant]
     Active Substance: OCTREOTIDE ACETATE
     Dosage: 20 MILLIGRAM, MONTHLY
     Route: 065
     Dates: start: 201601
  36. SANDOSTATIN [Concomitant]
     Active Substance: OCTREOTIDE ACETATE
     Dosage: 20 MILLIGRAM, MONTHLY
     Dates: start: 201601
  37. PREGNYL [Concomitant]
     Active Substance: CHORIOGONADOTROPIN ALFA
     Indication: Product used for unknown indication
     Dosage: 2000 INTERNATIONAL UNIT, Q2D (EVERY OTHER DAY)
  38. PREGNYL [Concomitant]
     Active Substance: CHORIOGONADOTROPIN ALFA
     Dosage: 2000 INTERNATIONAL UNIT, Q2D (EVERY OTHER DAY)
     Route: 058
  39. PREGNYL [Concomitant]
     Active Substance: CHORIOGONADOTROPIN ALFA
     Dosage: 2000 INTERNATIONAL UNIT, Q2D (EVERY OTHER DAY)
     Route: 058
  40. PREGNYL [Concomitant]
     Active Substance: CHORIOGONADOTROPIN ALFA
     Dosage: 2000 INTERNATIONAL UNIT, Q2D (EVERY OTHER DAY)
  41. PERINDOPRIL ERBUMINE [Concomitant]
     Active Substance: PERINDOPRIL ERBUMINE
     Indication: Product used for unknown indication
     Dosage: 8 MILLIGRAM, QD (1 EVERY 1 DAYS)
  42. PERINDOPRIL ERBUMINE [Concomitant]
     Active Substance: PERINDOPRIL ERBUMINE
     Dosage: 8 MILLIGRAM, QD (1 EVERY 1 DAYS)
     Route: 065
  43. PERINDOPRIL ERBUMINE [Concomitant]
     Active Substance: PERINDOPRIL ERBUMINE
     Dosage: 8 MILLIGRAM, QD (1 EVERY 1 DAYS)
     Route: 065
  44. PERINDOPRIL ERBUMINE [Concomitant]
     Active Substance: PERINDOPRIL ERBUMINE
     Dosage: 8 MILLIGRAM, QD (1 EVERY 1 DAYS)
  45. REPRONEX [Concomitant]
     Active Substance: FOLLITROPIN\LUTEINIZING HORMONE
     Indication: Product used for unknown indication
     Dosage: 75 INTERNATIONAL UNIT, 3XW (THREE TIMES A WEEK)
  46. REPRONEX [Concomitant]
     Active Substance: FOLLITROPIN\LUTEINIZING HORMONE
     Dosage: 75 INTERNATIONAL UNIT, 3XW (THREE TIMES A WEEK)
     Route: 065
  47. REPRONEX [Concomitant]
     Active Substance: FOLLITROPIN\LUTEINIZING HORMONE
     Dosage: 75 INTERNATIONAL UNIT, 3XW (THREE TIMES A WEEK)
     Route: 065
  48. REPRONEX [Concomitant]
     Active Substance: FOLLITROPIN\LUTEINIZING HORMONE
     Dosage: 75 INTERNATIONAL UNIT, 3XW (THREE TIMES A WEEK)
  49. CHORIONIC GONADOTROPHIN [Concomitant]
     Active Substance: CHORIOGONADOTROPIN ALFA
     Indication: Product used for unknown indication
     Dosage: 2000 INTERNATIONAL UNIT, Q2D (1 EVERY 2 DAYS)
  50. CHORIONIC GONADOTROPHIN [Concomitant]
     Active Substance: CHORIOGONADOTROPIN ALFA
     Dosage: 2000 INTERNATIONAL UNIT, Q2D (1 EVERY 2 DAYS)
     Route: 058
  51. CHORIONIC GONADOTROPHIN [Concomitant]
     Active Substance: CHORIOGONADOTROPIN ALFA
     Dosage: 2000 INTERNATIONAL UNIT, Q2D (1 EVERY 2 DAYS)
     Route: 058
  52. CHORIONIC GONADOTROPHIN [Concomitant]
     Active Substance: CHORIOGONADOTROPIN ALFA
     Dosage: 2000 INTERNATIONAL UNIT, Q2D (1 EVERY 2 DAYS)
  53. OCTREOTIDE ACETATE [Concomitant]
     Active Substance: OCTREOTIDE ACETATE
     Indication: Product used for unknown indication
     Dosage: 20 MILLIGRAM, MONTHLY (1 EVERY 1 MONTHS)
  54. OCTREOTIDE ACETATE [Concomitant]
     Active Substance: OCTREOTIDE ACETATE
     Dosage: 20 MILLIGRAM, MONTHLY (1 EVERY 1 MONTHS)
     Route: 065
  55. OCTREOTIDE ACETATE [Concomitant]
     Active Substance: OCTREOTIDE ACETATE
     Dosage: 20 MILLIGRAM, MONTHLY (1 EVERY 1 MONTHS)
     Route: 065
  56. OCTREOTIDE ACETATE [Concomitant]
     Active Substance: OCTREOTIDE ACETATE
     Dosage: 20 MILLIGRAM, MONTHLY (1 EVERY 1 MONTHS)
  57. REPRONEX [Concomitant]
     Active Substance: FOLLITROPIN\LUTEINIZING HORMONE
     Indication: Product used for unknown indication
     Dosage: 75 INTERNATIONAL UNIT
  58. REPRONEX [Concomitant]
     Active Substance: FOLLITROPIN\LUTEINIZING HORMONE
     Dosage: 75 INTERNATIONAL UNIT
     Route: 065
  59. REPRONEX [Concomitant]
     Active Substance: FOLLITROPIN\LUTEINIZING HORMONE
     Dosage: 75 INTERNATIONAL UNIT
     Route: 065
  60. REPRONEX [Concomitant]
     Active Substance: FOLLITROPIN\LUTEINIZING HORMONE
     Dosage: 75 INTERNATIONAL UNIT

REACTIONS (3)
  - Hypertension [Recovered/Resolved]
  - Insulin-like growth factor increased [Recovered/Resolved]
  - Intentional product misuse [Recovered/Resolved]
